FAERS Safety Report 10048216 (Version 4)
Quarter: 2014Q2

REPORT INFORMATION
  Report Type: Spontaneous
  Country: US (occurrence: US)
  Receive Date: 20140331
  Receipt Date: 20140415
  Transmission Date: 20141212
  Serious: Yes (Other)
  Sender: FDA-Public Use
  Company Number: US-PFIZER INC-2014089247

PATIENT
  Age: 54 Year
  Sex: Female
  Weight: 81.63 kg

DRUGS (1)
  1. LYRICA [Suspect]
     Indication: FIBROMYALGIA
     Dosage: 75 MG, DAILY
     Route: 048
     Dates: start: 201312

REACTIONS (23)
  - Pneumonia [Unknown]
  - Nasopharyngitis [Unknown]
  - Blood cholesterol increased [Unknown]
  - Blood triglycerides increased [Unknown]
  - Platelet count decreased [Unknown]
  - Hypotension [Unknown]
  - Drug withdrawal syndrome [Unknown]
  - Alopecia [Unknown]
  - Depression [Unknown]
  - Hyperhidrosis [Unknown]
  - Irritability [Unknown]
  - Anxiety [Unknown]
  - Insomnia [Unknown]
  - Muscle twitching [Unknown]
  - Malaise [Unknown]
  - Feeling abnormal [Unknown]
  - Abnormal dreams [Unknown]
  - Fear [Unknown]
  - Headache [Unknown]
  - Chills [Unknown]
  - Feeling of body temperature change [Unknown]
  - Decreased appetite [Unknown]
  - Nausea [Unknown]
